FAERS Safety Report 11079561 (Version 1)
Quarter: 2015Q2

REPORT INFORMATION
  Report Type: Spontaneous
  Country: US (occurrence: US)
  Receive Date: 20150430
  Receipt Date: 20150430
  Transmission Date: 20150821
  Serious: Yes (Death)
  Sender: FDA-Public Use
  Company Number: US-PFIZER INC-2015145938

PATIENT
  Age: 52 Year
  Sex: Male

DRUGS (1)
  1. SUTENT [Suspect]
     Active Substance: SUNITINIB MALATE
     Indication: RENAL CANCER
     Dosage: 50 MG, 1X/DAY
     Route: 048

REACTIONS (7)
  - Blood sodium decreased [Unknown]
  - Depression [Unknown]
  - Death [Fatal]
  - Disease progression [Unknown]
  - Renal cancer [Unknown]
  - Fatigue [Unknown]
  - Decreased appetite [Unknown]
